FAERS Safety Report 12896376 (Version 1)
Quarter: 2016Q4

REPORT INFORMATION
  Report Type: Spontaneous
  Country: US (occurrence: US)
  Receive Date: 20161031
  Receipt Date: 20161031
  Transmission Date: 20170207
  Serious: No
  Sender: FDA-Public Use
  Company Number: US-JAZZ-2016-US-016505

PATIENT
  Sex: Female

DRUGS (44)
  1. XYREM [Suspect]
     Active Substance: SODIUM OXYBATE
     Dosage: 3.5- 4 G FIRST DOSE
     Dates: start: 201602
  2. GINKGO BILOBA [Concomitant]
     Active Substance: GINKGO
  3. FIBER [Concomitant]
     Active Substance: PSYLLIUM HUSK
  4. SUPER B COMPLEX WITH C [Concomitant]
  5. BYSTOLIC [Concomitant]
     Active Substance: NEBIVOLOL HYDROCHLORIDE
  6. DYMISTA [Concomitant]
     Active Substance: AZELASTINE HYDROCHLORIDE\FLUTICASONE PROPIONATE
  7. XYREM [Suspect]
     Active Substance: SODIUM OXYBATE
     Indication: NARCOLEPSY
     Dosage: 3 G, BID
     Route: 048
     Dates: start: 201509, end: 201602
  8. VITAMIN B3 [Concomitant]
     Active Substance: NIACIN
  9. HYDROCHLOROTHIAZIDE. [Concomitant]
     Active Substance: HYDROCHLOROTHIAZIDE
  10. OXYCODONE HYDROCHLORIDE. [Concomitant]
     Active Substance: OXYCODONE HYDROCHLORIDE
  11. PROBIOTICS [Concomitant]
     Active Substance: PROBIOTICS NOS
  12. VALTREX [Concomitant]
     Active Substance: VALACYCLOVIR HYDROCHLORIDE
  13. LYRICA [Concomitant]
     Active Substance: PREGABALIN
  14. CALCIUM ACETATE. [Concomitant]
     Active Substance: CALCIUM ACETATE
  15. TOPIRAMATE. [Concomitant]
     Active Substance: TOPIRAMATE
  16. ZOFRAN [Concomitant]
     Active Substance: ONDANSETRON HYDROCHLORIDE
  17. RESTORIL [Concomitant]
     Active Substance: TEMAZEPAM
  18. CELEBREX [Concomitant]
     Active Substance: CELECOXIB
  19. XYREM [Suspect]
     Active Substance: SODIUM OXYBATE
     Dosage: 3 G, SECOND DOSE
     Route: 048
     Dates: start: 201602
  20. L-LYSINE [Concomitant]
     Active Substance: LYSINE
  21. COLLAGEN [Concomitant]
     Active Substance: COLLAGEN
  22. ACIPHEX [Concomitant]
     Active Substance: RABEPRAZOLE SODIUM
  23. BISOPROLOL FUMARATE. [Concomitant]
     Active Substance: BISOPROLOL FUMARATE
  24. PROAIR HFA [Concomitant]
     Active Substance: ALBUTEROL SULFATE
  25. BENADRYL ALLERGY [Concomitant]
     Active Substance: DIPHENHYDRAMINE HYDROCHLORIDE
  26. MELOXICAM. [Concomitant]
     Active Substance: MELOXICAM
  27. RANITIDINE. [Concomitant]
     Active Substance: RANITIDINE
  28. CLARITIN [Concomitant]
     Active Substance: LORATADINE
  29. DOXYCYCLINE MONOHYDRATE [Concomitant]
     Active Substance: DOXYCYCLINE
  30. PATADAY [Concomitant]
     Active Substance: OLOPATADINE HYDROCHLORIDE
  31. COMBIVENT RESPIMAT [Concomitant]
     Active Substance: ALBUTEROL SULFATE\IPRATROPIUM BROMIDE
  32. SPIRONOLACTONE. [Concomitant]
     Active Substance: SPIRONOLACTONE
  33. DAYTRANA [Concomitant]
     Active Substance: METHYLPHENIDATE
  34. ZYRTEC [Concomitant]
     Active Substance: CETIRIZINE HYDROCHLORIDE
  35. XYREM [Suspect]
     Active Substance: SODIUM OXYBATE
     Dosage: 3 G, THIRD DOSE
     Route: 048
     Dates: start: 201602
  36. OMEPRAZOLE. [Concomitant]
     Active Substance: OMEPRAZOLE
  37. VITAMIN E [Concomitant]
     Active Substance: .ALPHA.-TOCOPHEROL
  38. CLONAZEPAM. [Concomitant]
     Active Substance: CLONAZEPAM
  39. GABAPENTIN. [Concomitant]
     Active Substance: GABAPENTIN
  40. LORATADINE. [Concomitant]
     Active Substance: LORATADINE
  41. WELLBUTRIN [Concomitant]
     Active Substance: BUPROPION HYDROCHLORIDE
  42. ADDERALL [Concomitant]
     Active Substance: AMPHETAMINE ASPARTATE\AMPHETAMINE SULFATE\DEXTROAMPHETAMINE SACCHARATE\DEXTROAMPHETAMINE SULFATE
  43. AMARIS M [Concomitant]
  44. BACLOFEN. [Concomitant]
     Active Substance: BACLOFEN

REACTIONS (1)
  - Anxiety [Recovering/Resolving]

NARRATIVE: CASE EVENT DATE: 2015
